FAERS Safety Report 9559568 (Version 1)
Quarter: 2013Q3

REPORT INFORMATION
  Report Type: Spontaneous
  Country: US (occurrence: None)
  Receive Date: 20130909
  Receipt Date: 20130909
  Transmission Date: 20140515
  Serious: Yes (Other)
  Sender: FDA-Public Use
  Company Number: 379054

PATIENT
  Age: 61 Year
  Sex: Male
  Weight: 109.8 kg

DRUGS (5)
  1. VICTOZA (LIRAGLUTIDE) SOLUTION FOR INJECTION, 6MG/ML [Suspect]
     Indication: TYPE 2 DIABETES MELLITUS
     Route: 058
     Dates: start: 20130106, end: 20130508
  2. METFORMIN ER (METFORMIN HYDROCHLORIDE) [Concomitant]
  3. LISINOPRIL (LISINOPRIL) [Concomitant]
  4. COREG (CARVEDILOL) [Concomitant]
  5. CLONAZEPAM (CLONAZEPAM) [Concomitant]

REACTIONS (1)
  - Pancreatitis [None]
